FAERS Safety Report 16827701 (Version 1)
Quarter: 2019Q3

REPORT INFORMATION
  Report Type: Report from Study
  Country: AR (occurrence: AR)
  Receive Date: 20190919
  Receipt Date: 20190919
  Transmission Date: 20191005
  Serious: Yes (Hospitalization)
  Sender: FDA-Public Use
  Company Number: PHHY2013AR035223

PATIENT
  Sex: Male

DRUGS (8)
  1. EXFORGE [Suspect]
     Active Substance: AMLODIPINE BESYLATE\VALSARTAN
     Dosage: 1 DF (AMLODIPINE 10 MG, VALSARTAN 160 MG), QD
     Route: 048
  2. EXFORGE [Suspect]
     Active Substance: AMLODIPINE BESYLATE\VALSARTAN
     Indication: HYPERTENSION
     Dosage: UNK
     Route: 048
  3. DIONDEL [Concomitant]
     Indication: ARRHYTHMIA
     Dosage: UNK UNK, QD (MORNING)
     Route: 065
  4. EXFORGE [Suspect]
     Active Substance: AMLODIPINE BESYLATE\VALSARTAN
     Dosage: 0.5 DF (AMLODIPINE 10 MG, VALSARTAN 160 MG), QD
     Route: 048
  5. EXFORGE [Suspect]
     Active Substance: AMLODIPINE BESYLATE\VALSARTAN
     Dosage: 0.5 DF, QD (10 AMLODIPINE, 12.5 HYDROCHLOROTHIAZIDE, 160 VALSARTAN)
     Route: 065
     Dates: start: 20190825
  6. DIOCAM [Concomitant]
     Indication: ANXIETY
     Dosage: UNK UNK, BID (MORNING AND NIGHT)
     Route: 065
  7. EXFORGE [Suspect]
     Active Substance: AMLODIPINE BESYLATE\VALSARTAN
     Dosage: 1 DF, QD (10 AMLODIPINE, 12.5 HYDROCHLOROTHIAZIDE, 160 VALSARTAN)
     Route: 065
  8. EXFORGE [Suspect]
     Active Substance: AMLODIPINE BESYLATE\VALSARTAN
     Indication: PRODUCT USED FOR UNKNOWN INDICATION
     Dosage: 1 DF, QD (10 AMLODIPINE, 12.5 HYDROCHLOROTHIAZIDE, 160 VALSARTAN)
     Route: 065

REACTIONS (6)
  - Headache [Recovered/Resolved]
  - Wrong technique in product usage process [Recovering/Resolving]
  - Skin lesion [Unknown]
  - Peripheral swelling [Recovered/Resolved]
  - Blood pressure decreased [Recovered/Resolved]
  - Blood pressure increased [Recovered/Resolved]
